FAERS Safety Report 9170683 (Version 3)
Quarter: 2013Q2

REPORT INFORMATION
  Report Type: Spontaneous
  Country: JP (occurrence: JP)
  Receive Date: 20130319
  Receipt Date: 20130521
  Transmission Date: 20140414
  Serious: Yes (Death, Other)
  Sender: FDA-Public Use
  Company Number: JP-PFIZER INC-2013084877

PATIENT
  Age: 71 Year
  Sex: Male

DRUGS (4)
  1. REVATIO [Suspect]
     Indication: PULMONARY HYPERTENSION
     Dosage: 20 MG, 3X/DAY
     Route: 048
     Dates: start: 20130311, end: 2013
  2. BACTAR TABLETS [Concomitant]
     Dosage: UNK
  3. FUTHAN [Concomitant]
     Dosage: UNK
  4. LEPETAN [Concomitant]
     Dosage: UNK

REACTIONS (2)
  - Pulmonary hypertension [Fatal]
  - Ventilation perfusion mismatch [Recovering/Resolving]
